FAERS Safety Report 7955330-3 (Version None)
Quarter: 2011Q4

REPORT INFORMATION
  Report Type: 
  Country: None (occurrence: None)
  Receive Date: 20111202
  Receipt Date: 20111121
  Transmission Date: 20120403
  Serious: Yes (Hospitalization, Other)
  Sender: FDA-Public Use
  Company Number: US-ELI_LILLY_AND_COMPANY-US201111006898

PATIENT
  Sex: Male

DRUGS (7)
  1. LISINOPRIL [Concomitant]
     Dosage: 5 MG, EACH MORNING
  2. HUMALOG MIX 75/25 [Suspect]
     Indication: TYPE 2 DIABETES MELLITUS
     Dosage: 12 U, BID
     Dates: start: 20110901
  3. LACTOSE [Concomitant]
     Dosage: UNK
  4. LIPITOR [Concomitant]
     Dosage: UNK, EACH EVENING
  5. SPIRONOLACTONE [Concomitant]
     Dosage: UNK
  6. HUMALOG MIX 75/25 [Suspect]
     Dosage: 14 U, BID
  7. DIOVAN [Concomitant]
     Dosage: UNK, BID

REACTIONS (4)
  - PROSTATE CANCER [None]
  - BLOOD GLUCOSE INCREASED [None]
  - EXPIRED DRUG ADMINISTERED [None]
  - BLOOD GLUCOSE DECREASED [None]
